FAERS Safety Report 10892144 (Version 8)
Quarter: 2024Q1

REPORT INFORMATION
  Report Type: Report from Study
  Country: BR (occurrence: BR)
  Receive Date: 20150306
  Receipt Date: 20240108
  Transmission Date: 20240410
  Serious: Yes (Other)
  Sender: FDA-Public Use
  Company Number: BR-PFIZER INC-2015066448

PATIENT
  Age: 75 Year
  Sex: Male
  Weight: 80 kg

DRUGS (7)
  1. XALATAN [Suspect]
     Active Substance: LATANOPROST
     Indication: Glaucoma
     Dosage: 2 GTT DROPS, QD (ONE DROP EACH EYE, IN MORNING)
     Route: 047
  2. XALATAN [Suspect]
     Active Substance: LATANOPROST
     Dosage: 2 GTT DROPS, QD 1 DROP EACH EYE USED ONLY ONEDAY
     Route: 047
     Dates: start: 201502, end: 201502
  3. LATANOPROST\TIMOLOL MALEATE [Suspect]
     Active Substance: LATANOPROST\TIMOLOL MALEATE
     Indication: Glaucoma
     Dosage: 2 GTT DROPS, QD (1 DROP EACH EYE DAILY AT NIGHT)
     Route: 047
     Dates: start: 2011
  4. LATANOPROST\TIMOLOL MALEATE [Suspect]
     Active Substance: LATANOPROST\TIMOLOL MALEATE
     Dosage: UNK
     Route: 065
  5. LATANOPROST\TIMOLOL MALEATE [Suspect]
     Active Substance: LATANOPROST\TIMOLOL MALEATE
     Dosage: 2 GTT DROPS, QD ONE DROP EACH EYE DAILY AT NIGHT
     Route: 047
  6. DIOVAN [Concomitant]
     Active Substance: VALSARTAN
     Indication: Blood pressure abnormal
     Dosage: UNK
     Route: 065
  7. ASPIRIN [Concomitant]
     Active Substance: ASPIRIN
     Indication: Product used for unknown indication
     Dosage: UNK, ALTERNATE DAY
     Route: 065

REACTIONS (7)
  - Diabetes mellitus [Not Recovered/Not Resolved]
  - Blood cholesterol increased [Recovered/Resolved]
  - Feeling abnormal [Not Recovered/Not Resolved]
  - Hypoacusis [Not Recovered/Not Resolved]
  - Body height decreased [Not Recovered/Not Resolved]
  - Product dose omission issue [Recovered/Resolved]
  - Product storage error [Unknown]

NARRATIVE: CASE EVENT DATE: 20141001
